FAERS Safety Report 5229890-X (Version None)
Quarter: 2007Q1

REPORT INFORMATION
  Report Type: 
  Country: None (occurrence: None)
  Receive Date: 20070206
  Receipt Date: 20070123
  Transmission Date: 20070707
  Serious: No
  Sender: FDA-Public Use
  Company Number: US-GLAXOSMITHKLINE-A0628469A

PATIENT
  Age: 40 Year
  Sex: Female

DRUGS (5)
  1. PAXIL [Suspect]
     Indication: DEPRESSION
     Dosage: 20MG PER DAY
     Route: 048
     Dates: start: 20040101
  2. WELLBUTRIN SR [Concomitant]
     Dosage: 150MG PER DAY
     Route: 048
     Dates: start: 20060101
  3. ACYCLOVIR [Concomitant]
  4. ALBUTEROL [Concomitant]
  5. QVAR 40 [Concomitant]

REACTIONS (4)
  - DIZZINESS [None]
  - DRUG WITHDRAWAL SYNDROME [None]
  - FEELING ABNORMAL [None]
  - VOMITING [None]
